FAERS Safety Report 6030093-X (Version None)
Quarter: 2009Q1

REPORT INFORMATION
  Report Type: 
  Country: None (occurrence: None)
  Receive Date: 20090106
  Receipt Date: 20090106
  Transmission Date: 20090719
  Serious: No
  Sender: FDA-Public Use
  Company Number: None

PATIENT
  Sex: Male
  Weight: 87.0906 kg

DRUGS (2)
  1. CARVEDILOL [Suspect]
     Indication: HYPERTENSION
     Dosage: 1 TAB; BID; PO
     Route: 048
  2. RAMIPRIL [Suspect]
     Indication: HYPERTENSION
     Dosage: 1 TAB; BID; PO
     Route: 048

REACTIONS (2)
  - ACTIVITIES OF DAILY LIVING IMPAIRED [None]
  - HEADACHE [None]
